FAERS Safety Report 24729162 (Version 2)
Quarter: 2025Q1

REPORT INFORMATION
  Report Type: Spontaneous
  Country: AU (occurrence: AU)
  Receive Date: 20241213
  Receipt Date: 20250207
  Transmission Date: 20250408
  Serious: Yes (Death)
  Sender: AMGEN
  Company Number: AU-AMGEN-AUSSP2024243794

PATIENT

DRUGS (1)
  1. PROLIA [Suspect]
     Active Substance: DENOSUMAB
     Indication: Product used for unknown indication
     Route: 065

REACTIONS (1)
  - Death [Fatal]
